FAERS Safety Report 18986095 (Version 3)
Quarter: 2023Q2

REPORT INFORMATION
  Report Type: Spontaneous
  Country: US (occurrence: US)
  Receive Date: 20210309
  Receipt Date: 20230406
  Transmission Date: 20230722
  Serious: Yes (Other)
  Sender: FDA-Public Use
  Company Number: US-GILEAD-2021-0519935

PATIENT
  Sex: Female
  Weight: 91.61 kg

DRUGS (38)
  1. VIREAD [Suspect]
     Active Substance: TENOFOVIR DISOPROXIL FUMARATE
     Indication: HIV infection
     Dosage: UNK
     Route: 048
     Dates: start: 2001, end: 201109
  2. VIREAD [Suspect]
     Active Substance: TENOFOVIR DISOPROXIL FUMARATE
     Dosage: UNK
     Route: 065
     Dates: start: 2001, end: 2004
  3. TRUVADA [Suspect]
     Active Substance: EMTRICITABINE\TENOFOVIR DISOPROXIL FUMARATE
     Indication: HIV infection
     Dosage: UNK
     Route: 048
     Dates: start: 2001
  4. TRUVADA [Suspect]
     Active Substance: EMTRICITABINE\TENOFOVIR DISOPROXIL FUMARATE
     Dosage: UNK
     Route: 065
     Dates: start: 2004, end: 2012
  5. TRUVADA [Suspect]
     Active Substance: EMTRICITABINE\TENOFOVIR DISOPROXIL FUMARATE
     Dosage: UNK
     Route: 048
     Dates: start: 201110, end: 201602
  6. STRIBILD [Suspect]
     Active Substance: COBICISTAT\ELVITEGRAVIR\EMTRICITABINE\TENOFOVIR DISOPROXIL FUMARATE
     Indication: HIV infection
     Dosage: UNK
     Route: 048
     Dates: start: 2001
  7. STRIBILD [Suspect]
     Active Substance: COBICISTAT\ELVITEGRAVIR\EMTRICITABINE\TENOFOVIR DISOPROXIL FUMARATE
     Dosage: UNK
     Route: 065
     Dates: start: 2012, end: 2018
  8. STRIBILD [Suspect]
     Active Substance: COBICISTAT\ELVITEGRAVIR\EMTRICITABINE\TENOFOVIR DISOPROXIL FUMARATE
     Dosage: UNK
     Route: 048
     Dates: start: 201602, end: 2018
  9. GENVOYA [Concomitant]
     Active Substance: COBICISTAT\ELVITEGRAVIR\EMTRICITABINE\TENOFOVIR ALAFENAMIDE FUMARATE
  10. BIKTARVY [Concomitant]
     Active Substance: BICTEGRAVIR SODIUM\EMTRICITABINE\TENOFOVIR ALAFENAMIDE FUMARATE
  11. VITAMIN D NOS [Concomitant]
     Active Substance: VITAMIN D NOS
  12. CALCIUM [Concomitant]
     Active Substance: CALCIUM
  13. ALENDRONATE [Concomitant]
     Active Substance: ALENDRONATE SODIUM
  14. COMBIVIR [Concomitant]
     Active Substance: LAMIVUDINE\ZIDOVUDINE
  15. LEXIVA [Concomitant]
     Active Substance: FOSAMPRENAVIR CALCIUM
  16. PREZISTA [Concomitant]
     Active Substance: DARUNAVIR ETHANOLATE
  17. BACLOFEN [Concomitant]
     Active Substance: BACLOFEN
  18. CARVEDILOL [Concomitant]
     Active Substance: CARVEDILOL
  19. DUPIXENT [Concomitant]
     Active Substance: DUPILUMAB
  20. EZETIMIBE [Concomitant]
     Active Substance: EZETIMIBE
  21. LORATADINE [Concomitant]
     Active Substance: LORATADINE
  22. METOCLOPRAMIDE [Concomitant]
     Active Substance: METOCLOPRAMIDE
  23. PRAVASTATIN [Concomitant]
     Active Substance: PRAVASTATIN
  24. SPIRIVA [Concomitant]
     Active Substance: TIOTROPIUM BROMIDE MONOHYDRATE
  25. NORVIR [Concomitant]
     Active Substance: RITONAVIR
  26. PREVACID [Concomitant]
     Active Substance: LANSOPRAZOLE
  27. MEDROXYPROGESTERONE [Concomitant]
     Active Substance: MEDROXYPROGESTERONE
  28. HYDROCHLOROTHIAZIDE [Concomitant]
     Active Substance: HYDROCHLOROTHIAZIDE
  29. GEMFIBROZIL [Concomitant]
     Active Substance: GEMFIBROZIL
  30. LISINOPRIL [Concomitant]
     Active Substance: LISINOPRIL
  31. OMEPRAZOLE [Concomitant]
     Active Substance: OMEPRAZOLE
  32. FAMOTIDINE [Concomitant]
     Active Substance: FAMOTIDINE
  33. OMEGA-3 FATTY ACIDS [Concomitant]
     Active Substance: OMEGA-3 FATTY ACIDS
  34. NITROSTAT [Concomitant]
     Active Substance: NITROGLYCERIN
  35. RANITIDINE [Concomitant]
     Active Substance: RANITIDINE
  36. ATORVASTATIN [Concomitant]
     Active Substance: ATORVASTATIN
  37. PREDNISOLONE [Concomitant]
     Active Substance: PREDNISOLONE
  38. METHYLPREDNISOLONE [Concomitant]
     Active Substance: METHYLPREDNISOLONE

REACTIONS (11)
  - Multiple fractures [Unknown]
  - Renal injury [Unknown]
  - Osteoporosis [Not Recovered/Not Resolved]
  - Bone density decreased [Unknown]
  - Pain [Not Recovered/Not Resolved]
  - Emotional distress [Not Recovered/Not Resolved]
  - Anhedonia [Not Recovered/Not Resolved]
  - Depression [Not Recovered/Not Resolved]
  - Skeletal injury [Unknown]
  - Anxiety [Not Recovered/Not Resolved]
  - Muscle mass [Unknown]

NARRATIVE: CASE EVENT DATE: 20050101
